FAERS Safety Report 4677402-1 (Version None)
Quarter: 2005Q2

REPORT INFORMATION
  Report Type: 
  Country: None (occurrence: None)
  Receive Date: 20050531
  Receipt Date: 20050331
  Transmission Date: 20051028
  Serious: Yes (Death)
  Sender: FDA-Public Use
  Company Number: PHHO2005JP05288

PATIENT
  Age: 86 Year
  Sex: Male
  Weight: 69 kg

DRUGS (4)
  1. DIOVAN [Suspect]
     Indication: HYPERTENSION
     Dosage: 40 MG, QD
     Route: 048
     Dates: start: 20030203
  2. BAYASPIRIN [Concomitant]
     Dosage: 100 MG, QD
     Route: 048
     Dates: start: 20030203
  3. LASIX [Suspect]
     Dosage: 40 MG, QD
     Route: 048
     Dates: start: 20030203
  4. NITRODERM [Suspect]
     Dosage: 25 MG, QD
     Route: 062
     Dates: start: 20030203

REACTIONS (3)
  - CARDIAC FAILURE CONGESTIVE [None]
  - CONDITION AGGRAVATED [None]
  - VENTRICULAR TACHYCARDIA [None]
